FAERS Safety Report 5763789-5 (Version None)
Quarter: 2008Q2

REPORT INFORMATION
  Report Type: 
  Country: None (occurrence: None)
  Receive Date: 20080602
  Receipt Date: 20070627
  Transmission Date: 20081010
  Serious: Yes (Hospitalization)
  Sender: FDA-Public Use
  Company Number: 158034USA

PATIENT
  Age: 53 Year
  Sex: Female

DRUGS (7)
  1. CEFALEXIN CAPSULES (CEFALEXIN) [Suspect]
     Dosage: 1500 MG (500 MG,3 IN 1 D), ORAL
     Route: 048
     Dates: start: 20060608, end: 20060613
  2. LISINOPRIL [Concomitant]
  3. METOPROLOL SUCCINATE [Concomitant]
  4. METFORMIN [Concomitant]
  5. COSOPT [Concomitant]
  6. EZETIMIBE [Concomitant]
  7. ACETAMINOPHEN [Concomitant]

REACTIONS (2)
  - ERYTHEMA MULTIFORME [None]
  - STEVENS-JOHNSON SYNDROME [None]
